FAERS Safety Report 18665435 (Version 3)
Quarter: 2021Q2

REPORT INFORMATION
  Report Type: Report from Study
  Country: US (occurrence: US)
  Receive Date: 20201225
  Receipt Date: 20210504
  Transmission Date: 20210717
  Serious: No
  Sender: FDA-Public Use
  Company Number: US-GLAXOSMITHKLINE-US2020AMR250242

PATIENT
  Sex: Male

DRUGS (2)
  1. BELANTAMAB MAFODOTIN. [Suspect]
     Active Substance: BELANTAMAB MAFODOTIN
     Indication: PLASMA CELL MYELOMA
     Dosage: UNK
  2. BELANTAMAB MAFODOTIN. [Suspect]
     Active Substance: BELANTAMAB MAFODOTIN
     Dosage: 200 MG
     Dates: start: 20201130, end: 20201130

REACTIONS (8)
  - Foreign body sensation in eyes [Unknown]
  - Dry eye [Unknown]
  - Eye pruritus [Unknown]
  - Night blindness [Unknown]
  - Condition aggravated [Unknown]
  - Keratopathy [Unknown]
  - Hospice care [Unknown]
  - Visual acuity reduced [Unknown]
